FAERS Safety Report 23079216 (Version 4)
Quarter: 2023Q4

REPORT INFORMATION
  Report Type: Report from Study
  Country: MY (occurrence: MY)
  Receive Date: 20231018
  Receipt Date: 20231229
  Transmission Date: 20240110
  Serious: Yes (Hospitalization)
  Sender: FDA-Public Use
  Company Number: MY-TAKEDA-2023TUS088801

PATIENT
  Age: 25 Year
  Sex: Male

DRUGS (1)
  1. VEDOLIZUMAB [Suspect]
     Active Substance: VEDOLIZUMAB
     Indication: Crohn^s disease
     Dosage: 300 MILLIGRAM
     Route: 042
     Dates: start: 20230721

REACTIONS (2)
  - Urinary tract infection [Unknown]
  - Fistula [Unknown]
